FAERS Safety Report 25925104 (Version 1)
Quarter: 2025Q4

REPORT INFORMATION
  Report Type: Spontaneous
  Country: US (occurrence: US)
  Receive Date: 20251015
  Receipt Date: 20251015
  Transmission Date: 20260117
  Serious: No
  Sender: QUAGEN PHARMACEUTICALS
  Company Number: US-QUAGEN-2025QUASPO00671

PATIENT

DRUGS (2)
  1. LEVETIRACETAM [Suspect]
     Active Substance: LEVETIRACETAM
     Indication: Product used for unknown indication
     Route: 065
  2. LAMOTRIGINE [Suspect]
     Active Substance: LAMOTRIGINE
     Indication: Product used for unknown indication
     Route: 065

REACTIONS (4)
  - Feeling abnormal [Unknown]
  - Feeling hot [Unknown]
  - Fatigue [Unknown]
  - Dizziness [Unknown]
